FAERS Safety Report 24925870 (Version 1)
Quarter: 2025Q1

REPORT INFORMATION
  Report Type: Spontaneous
  Country: JP (occurrence: JP)
  Receive Date: 20250205
  Receipt Date: 20250205
  Transmission Date: 20250408
  Serious: Yes (Death, Other)
  Sender: JAZZ
  Company Number: JP-JAZZ PHARMACEUTICALS-2025-JP-003165

PATIENT
  Age: 2 Year
  Sex: Female

DRUGS (3)
  1. DEFITELIO [Suspect]
     Active Substance: DEFIBROTIDE SODIUM
     Indication: Venoocclusive liver disease
     Route: 042
  2. BUSULFAN [Concomitant]
     Active Substance: BUSULFAN
     Indication: Neuroblastoma
  3. ALKERAN [Concomitant]
     Active Substance: MELPHALAN
     Indication: Neuroblastoma

REACTIONS (2)
  - Multiple organ dysfunction syndrome [Fatal]
  - Anaemia [Unknown]
